FAERS Safety Report 7529039-4 (Version None)
Quarter: 2011Q2

REPORT INFORMATION
  Report Type: 
  Country: None (occurrence: None)
  Receive Date: 20110607
  Receipt Date: 20110527
  Transmission Date: 20111010
  Serious: Yes (Hospitalization)
  Sender: FDA-Public Use
  Company Number: CA-SANOFI-AVENTIS-2011SA034181

PATIENT
  Age: 78 Year
  Sex: Male

DRUGS (5)
  1. DABIGATRAN [Interacting]
     Route: 065
  2. BISOPROLOL FUMARATE [Concomitant]
     Route: 065
  3. DRONEDARONE HCL [Suspect]
     Indication: ATRIAL FIBRILLATION
     Route: 065
  4. AMIODARONE HCL [Concomitant]
     Route: 065
  5. METOPROLOL SUCCINATE [Concomitant]
     Route: 065

REACTIONS (3)
  - DYSPNOEA [None]
  - DRUG INTERACTION [None]
  - PULMONARY ALVEOLAR HAEMORRHAGE [None]
